FAERS Safety Report 12567241 (Version 1)
Quarter: 2016Q3

REPORT INFORMATION
  Report Type: Other
  Country: US (occurrence: US)
  Receive Date: 20160718
  Receipt Date: 20160718
  Transmission Date: 20161109
  Serious: Yes (Other)
  Sender: FDA-Public Use
  Company Number: US-SHIRE-US201608540

PATIENT
  Age: 16 Year
  Sex: Female
  Weight: 37.91 kg

DRUGS (1)
  1. VPRIV [Suspect]
     Active Substance: VELAGLUCERASE ALFA
     Indication: GAUCHER^S DISEASE TYPE I
     Dosage: 2000 IU, 1X/2WKS
     Route: 041
     Dates: start: 20100607

REACTIONS (5)
  - Headache [Unknown]
  - Vomiting [Unknown]
  - Dizziness [Unknown]
  - Infusion related reaction [Unknown]
  - Nausea [Unknown]

NARRATIVE: CASE EVENT DATE: 2016
